FAERS Safety Report 21404860 (Version 1)
Quarter: 2022Q3

REPORT INFORMATION
  Report Type: Spontaneous
  Country: US (occurrence: None)
  Receive Date: 20220930
  Receipt Date: 20220930
  Transmission Date: 20221027
  Serious: Yes (Hospitalization)
  Sender: FDA-Public Use
  Company Number: None

PATIENT
  Age: 64 Year
  Sex: Male

DRUGS (2)
  1. LIDOCAINE [Suspect]
     Active Substance: LIDOCAINE
     Indication: Pain
     Dates: start: 20220615, end: 20220628
  2. PROPOFOL [Suspect]
     Active Substance: PROPOFOL

REACTIONS (9)
  - Angioedema [None]
  - Swollen tongue [None]
  - Lip swelling [None]
  - Swelling face [None]
  - Chest discomfort [None]
  - Pruritus [None]
  - Swelling face [None]
  - Hypersensitivity [None]
  - Mouth swelling [None]

NARRATIVE: CASE EVENT DATE: 20220628
